FAERS Safety Report 4469508-7 (Version None)
Quarter: 2004Q4

REPORT INFORMATION
  Report Type: 
  Country: None (occurrence: None)
  Receive Date: 20041005
  Receipt Date: 20040922
  Transmission Date: 20050328
  Serious: Yes (Other)
  Sender: FDA-Public Use
  Company Number: 2004069184

PATIENT
  Sex: 0

DRUGS (2)
  1. PHENYTOIN SUSPENSION (PHENYTOIN SUSPENSION) [Suspect]
     Indication: ILL-DEFINED DISORDER
     Dosage: ORAL
     Route: 048
  2. TEMOZOLOMIDE (TEMOZOLOMIDE) [Suspect]
     Indication: ILL-DEFINED DISORDER
     Dosage: ORAL
     Route: 048

REACTIONS (3)
  - ANTICONVULSANT DRUG LEVEL BELOW THERAPEUTIC [None]
  - CONVULSION [None]
  - DRUG INTERACTION [None]
